FAERS Safety Report 16652323 (Version 2)
Quarter: 2019Q3

REPORT INFORMATION
  Report Type: Spontaneous
  Country: US (occurrence: US)
  Receive Date: 20190731
  Receipt Date: 20190805
  Transmission Date: 20191004
  Serious: No
  Sender: FDA-Public Use
  Company Number: US-BAYER-2019-142482

PATIENT
  Age: 30 Year
  Sex: Female
  Weight: 68.48 kg

DRUGS (1)
  1. GADAVIST [Suspect]
     Active Substance: GADOBUTROL
     Indication: ROTATOR CUFF SYNDROME
     Dosage: 1.0, ONCE
     Route: 013
     Dates: start: 20190718

REACTIONS (4)
  - Hypoaesthesia [None]
  - Pruritus [None]
  - Nausea [Recovered/Resolved]
  - Vomiting [Recovered/Resolved]

NARRATIVE: CASE EVENT DATE: 20190718
